FAERS Safety Report 5851967-6 (Version None)
Quarter: 2008Q3

REPORT INFORMATION
  Report Type: 
  Country: None (occurrence: None)
  Receive Date: 20080820
  Receipt Date: 20080808
  Transmission Date: 20090109
  Serious: Yes (Life-Threatening, Hospitalization)
  Sender: FDA-Public Use
  Company Number: US-PFIZER INC-2007086021

PATIENT
  Sex: Female

DRUGS (6)
  1. NARDIL [Suspect]
     Indication: DEPRESSION
     Route: 048
  2. NARDIL [Suspect]
     Indication: ANXIETY
     Route: 048
  3. NARDIL [Suspect]
     Route: 048
  4. XANAX [Suspect]
  5. PERCOCET [Suspect]
     Indication: DEPRESSION
  6. PERCOCET [Suspect]
     Indication: ANXIETY

REACTIONS (10)
  - APHASIA [None]
  - BLOOD PRESSURE DECREASED [None]
  - CONVULSION [None]
  - DRUG TOLERANCE [None]
  - DRUG WITHDRAWAL SYNDROME [None]
  - DYSSTASIA [None]
  - GAIT DISTURBANCE [None]
  - HYPOAESTHESIA [None]
  - INSOMNIA [None]
  - OEDEMA PERIPHERAL [None]
